FAERS Safety Report 11029289 (Version 1)
Quarter: 2015Q2

REPORT INFORMATION
  Report Type: Report from Study
  Country: US (occurrence: US)
  Receive Date: 20150415
  Receipt Date: 20150415
  Transmission Date: 20150821
  Serious: Yes (Other)
  Sender: FDA-Public Use
  Company Number: US-ROCHE-1561076

PATIENT
  Age: 49 Year
  Sex: Male

DRUGS (10)
  1. METFORMIN [Concomitant]
     Active Substance: METFORMIN HYDROCHLORIDE
     Indication: DIABETES MELLITUS
     Route: 065
  2. PROTONIX (UNITED STATES) [Concomitant]
     Indication: GASTROOESOPHAGEAL REFLUX DISEASE
     Route: 065
  3. BENTYL [Concomitant]
     Active Substance: DICYCLOMINE HYDROCHLORIDE
     Dosage: HALF HOUR BEFORE EATING
     Route: 065
  4. DULERA [Concomitant]
     Active Substance: FORMOTEROL FUMARATE DIHYDRATE\MOMETASONE FUROATE
     Indication: CHRONIC OBSTRUCTIVE PULMONARY DISEASE
     Dosage: 2 PUFF
     Route: 065
  5. ALBUTEROL. [Concomitant]
     Active Substance: ALBUTEROL
     Indication: CHRONIC OBSTRUCTIVE PULMONARY DISEASE
     Dosage: 2 PUFF
     Route: 065
  6. ADALIMUMAB [Suspect]
     Active Substance: ADALIMUMAB
     Indication: RHEUMATOID ARTHRITIS
     Route: 065
     Dates: start: 20131113
  7. ADALIMUMAB [Suspect]
     Active Substance: ADALIMUMAB
     Route: 065
     Dates: start: 20140107, end: 201408
  8. LYRICA [Concomitant]
     Active Substance: PREGABALIN
     Indication: NEUROPATHY PERIPHERAL
     Route: 065
  9. ZANAFLEX [Concomitant]
     Active Substance: TIZANIDINE HYDROCHLORIDE
     Indication: MUSCLE RELAXANT THERAPY
     Route: 065
  10. RITUXIMAB [Suspect]
     Active Substance: RITUXIMAB
     Indication: RHEUMATOID ARTHRITIS
     Route: 065
     Dates: start: 20141211

REACTIONS (37)
  - Pruritus [Unknown]
  - Headache [Unknown]
  - Joint swelling [Unknown]
  - Bronchitis [Recovered/Resolved]
  - Rash [Unknown]
  - Drug ineffective [Unknown]
  - Cellulitis [Unknown]
  - Respiratory tract congestion [Recovered/Resolved]
  - Bronchitis [Unknown]
  - Fatigue [Unknown]
  - Abdominal pain upper [Unknown]
  - Nausea [Unknown]
  - Dry skin [Unknown]
  - Injection site haemorrhage [Unknown]
  - Hepatic steatosis [Unknown]
  - Biliary dyskinesia [Unknown]
  - Muscle strain [Unknown]
  - Abdominal pain [Unknown]
  - Hepatobiliary scan abnormal [Unknown]
  - Drug dose omission [Unknown]
  - Rash [Unknown]
  - Arthralgia [Unknown]
  - Injection site pain [Recovered/Resolved]
  - Nasopharyngitis [Recovered/Resolved]
  - Joint swelling [Unknown]
  - Platelet count decreased [Unknown]
  - Pain in extremity [Unknown]
  - Peripheral swelling [Unknown]
  - Cough [Unknown]
  - Rash erythematous [Unknown]
  - Injection site erythema [Unknown]
  - Erythema [Unknown]
  - Musculoskeletal stiffness [Unknown]
  - Abdominal rigidity [Unknown]
  - Peripheral swelling [Recovered/Resolved]
  - Erythema [Unknown]
  - Local swelling [Unknown]

NARRATIVE: CASE EVENT DATE: 20131113
